FAERS Safety Report 8551619-8 (Version None)
Quarter: 2012Q3

REPORT INFORMATION
  Report Type: 
  Country: None (occurrence: None)
  Receive Date: 20120730
  Receipt Date: 20120621
  Transmission Date: 20120928
  Serious: Yes (Hospitalization)
  Sender: FDA-Public Use
  Company Number: DK-BAYER-2012-057810

PATIENT
  Age: 73 Year
  Sex: Male
  Weight: 80.952 kg

DRUGS (11)
  1. ASPIRIN [Suspect]
     Dosage: 150MG
     Route: 048
     Dates: start: 20030127, end: 20030320
  2. HYDROXYUREA [Suspect]
     Indication: ESSENTIAL THROMBOCYTHAEMIA
     Dosage: 500MG
     Route: 048
     Dates: start: 20090921, end: 20090922
  3. ACETYLSALICYLIC ACID W/DIPYRIDAMOLE [Suspect]
     Dosage: 1 DF DAILY DOSE
     Dates: start: 20030127, end: 20050320
  4. HYDROXYUREA [Suspect]
     Dosage: 500MG
     Route: 048
     Dates: start: 20091012, end: 20091102
  5. CITALOPRAM HYDROBROMIDE [Concomitant]
     Indication: DEPRESSION
  6. ANAGRELIDE HCL [Suspect]
     Dosage: 2MG
     Route: 048
     Dates: start: 20090602, end: 20090921
  7. ANAGRELIDE HCL [Suspect]
     Indication: ESSENTIAL THROMBOCYTHAEMIA
     Dosage: 1MG
     Route: 048
     Dates: start: 20091109, end: 20091117
  8. ASPIRIN [Suspect]
     Dosage: 75MG
     Route: 048
     Dates: start: 20091230, end: 20100708
  9. ACETYLSALICYLIC ACID W/DIPYRIDAMOLE [Suspect]
     Indication: ESSENTIAL THROMBOCYTHAEMIA
     Dosage: 2 DF DAILY DOSE
     Dates: start: 20050320, end: 20090921
  10. ANAGRELIDE HCL [Suspect]
     Dosage: DOSE OF 1 MG AND 3.5 MG
     Route: 048
     Dates: start: 20000628, end: 20090302
  11. ASPIRIN [Suspect]
     Indication: ESSENTIAL THROMBOCYTHAEMIA
     Dosage: 150MG
     Route: 048
     Dates: start: 20000628, end: 20030125

REACTIONS (5)
  - PERICARDIAL EFFUSION [None]
  - GENERALISED OEDEMA [None]
  - CARDIOMEGALY [None]
  - CARDIOMYOPATHY [None]
  - CARDIAC FAILURE [None]
